FAERS Safety Report 13969231 (Version 10)
Quarter: 2019Q4

REPORT INFORMATION
  Report Type: Spontaneous
  Country: DK (occurrence: DK)
  Receive Date: 20170914
  Receipt Date: 20191030
  Transmission Date: 20200122
  Serious: Yes (Hospitalization, Disabling)
  Sender: FDA-Public Use
  Company Number: DK-IPSEN BIOPHARMACEUTICALS, INC.-2017-10531

PATIENT
  Age: 46 Year
  Sex: Female
  Weight: 50 kg

DRUGS (7)
  1. UNIKALK [Concomitant]
     Indication: CALCIUM METABOLISM DISORDER
  2. MABLET [Concomitant]
  3. HYDROCYNOM [Concomitant]
  4. LEVAXIN [Concomitant]
     Active Substance: LEVOTHYROXINE SODIUM
     Indication: HYPOMETABOLISM
  5. ELTROXIN [Concomitant]
     Active Substance: LEVOTHYROXINE
  6. AZZALURE [Suspect]
     Active Substance: BOTULINUM TOXIN TYPE A
     Indication: SKIN WRINKLING
     Dosage: 55 UNITS
     Route: 030
     Dates: start: 20140903, end: 20140903
  7. ETHALPA [Concomitant]

REACTIONS (48)
  - Bone deformity [Unknown]
  - Muscle spasms [Unknown]
  - Alopecia [Unknown]
  - Dermatitis [Unknown]
  - Visual impairment [Unknown]
  - Paraesthesia [Unknown]
  - Eye colour change [Unknown]
  - Head discomfort [Unknown]
  - Anxiety [Not Recovered/Not Resolved]
  - Dyspnoea [Unknown]
  - Poisoning [Unknown]
  - Burning sensation [Unknown]
  - Headache [Unknown]
  - Nausea [Unknown]
  - Vasculitis [Unknown]
  - Brain injury [Not Recovered/Not Resolved]
  - Pyrexia [Unknown]
  - Prescribed overdose [Unknown]
  - Myalgia [Unknown]
  - Eyelid disorder [Unknown]
  - Heart rate increased [Unknown]
  - Injection site discomfort [Unknown]
  - Vaginal haemorrhage [Unknown]
  - Confusional state [Unknown]
  - Pupils unequal [Unknown]
  - Lipoatrophy [Unknown]
  - Lid sulcus deepened [Unknown]
  - Dizziness [Unknown]
  - Malaise [Unknown]
  - Diplopia [Unknown]
  - Eye movement disorder [Unknown]
  - Headache [Unknown]
  - Scan brain [Unknown]
  - Mental disability [Unknown]
  - Dry eye [Not Recovered/Not Resolved]
  - Ear discomfort [Not Recovered/Not Resolved]
  - Pain [Recovering/Resolving]
  - Migraine [Unknown]
  - Eye pain [Unknown]
  - Strabismus [Unknown]
  - Pain [Not Recovered/Not Resolved]
  - Injection site pain [Unknown]
  - Dry mouth [Not Recovered/Not Resolved]
  - Dysaesthesia [Unknown]
  - Feeling abnormal [Not Recovered/Not Resolved]
  - Facial paresis [Unknown]
  - Vomiting [Unknown]
  - Alopecia [Unknown]

NARRATIVE: CASE EVENT DATE: 2014
